FAERS Safety Report 5932745-6 (Version None)
Quarter: 2008Q4

REPORT INFORMATION
  Report Type: 
  Country: None (occurrence: None)
  Receive Date: 20081028
  Receipt Date: 20081022
  Transmission Date: 20090506
  Serious: Yes (Death, Hospitalization)
  Sender: FDA-Public Use
  Company Number: PHHO2008FR08493

PATIENT
  Sex: Male
  Weight: 60 kg

DRUGS (1)
  1. TASIGNA [Suspect]
     Indication: CHRONIC MYELOID LEUKAEMIA
     Dosage: 600MG DAILY
     Route: 048
     Dates: start: 20080121, end: 20080630

REACTIONS (10)
  - ABDOMINAL ADHESIONS [None]
  - ABDOMINAL PAIN [None]
  - ASPIRATION [None]
  - CARDIO-RESPIRATORY ARREST [None]
  - FAECAL VOMITING [None]
  - GASTROINTESTINAL MOTILITY DISORDER [None]
  - INTESTINAL ADHESION LYSIS [None]
  - RESPIRATORY DISORDER [None]
  - SMALL INTESTINAL OBSTRUCTION [None]
  - VOMITING [None]
